FAERS Safety Report 13720684 (Version 1)
Quarter: 2017Q3

REPORT INFORMATION
  Report Type: Spontaneous
  Country: US (occurrence: US)
  Receive Date: 20170705
  Receipt Date: 20170705
  Transmission Date: 20171127
  Serious: Yes (Hospitalization, Disabling, Other)
  Sender: FDA-Public Use
  Company Number: None

PATIENT
  Age: 52 Year
  Sex: Female
  Weight: 104.42 kg

DRUGS (7)
  1. STOOL SOFTENER (DOCUSATE) [Concomitant]
     Active Substance: DOCUSATE
  2. GABAPINTIN [Concomitant]
  3. POLYETHYLENE GLYCOL 3350. [Concomitant]
     Active Substance: POLYETHYLENE GLYCOL 3350
  4. TRAMADOL HCL [Suspect]
     Active Substance: TRAMADOL HYDROCHLORIDE
     Indication: ARTHRALGIA
     Route: 048
     Dates: start: 20071015, end: 20170629
  5. POWD. (MIRALAX) [Concomitant]
  6. DUEXIS [Concomitant]
     Active Substance: FAMOTIDINE\IBUPROFEN
  7. LEFT KNEE BRACE [Concomitant]

REACTIONS (2)
  - Schizophrenia [None]
  - Imprisonment [None]

NARRATIVE: CASE EVENT DATE: 20130702
